FAERS Safety Report 6694397-X (Version None)
Quarter: 2010Q2

REPORT INFORMATION
  Report Type: 
  Country: None (occurrence: None)
  Receive Date: 20100423
  Receipt Date: 20100416
  Transmission Date: 20101027
  Serious: Yes (Other)
  Sender: FDA-Public Use
  Company Number: US-JNJCH-2010008502

PATIENT
  Age: 48 Year
  Sex: Female

DRUGS (2)
  1. ZYRTEC [Suspect]
     Indication: DRUG USE FOR UNKNOWN INDICATION
     Dosage: TEXT:UNSPECIFIED
     Route: 048
  2. THYROID TAB [Concomitant]
     Indication: THYROID DISORDER
     Dosage: TEXT:UNKNOWN
     Route: 065

REACTIONS (2)
  - PRURITUS GENERALISED [None]
  - WITHDRAWAL SYNDROME [None]
